FAERS Safety Report 5106688-4 (Version None)
Quarter: 2006Q3

REPORT INFORMATION
  Report Type: 
  Country: None (occurrence: None)
  Receive Date: 20060913
  Receipt Date: 20060824
  Transmission Date: 20061208
  Serious: Yes (Hospitalization)
  Sender: FDA-Public Use
  Company Number: NL200602004459

PATIENT
  Age: 25 Year
  Sex: Female

DRUGS (3)
  1. CYMBALTA [Suspect]
     Dosage: 60 MG, DAILY (1/D), ORAL
     Route: 048
     Dates: start: 20060131
  2. PANCRELIPASE (PANCRELIPASE) [Concomitant]
  3. URSODIOL [Concomitant]

REACTIONS (4)
  - CONDITION AGGRAVATED [None]
  - FEAR OF DISEASE [None]
  - PANCREATITIS CHRONIC [None]
  - SOMATISATION DISORDER [None]
